FAERS Safety Report 11487430 (Version 1)
Quarter: 2015Q3

REPORT INFORMATION
  Report Type: Spontaneous
  Country: US (occurrence: US)
  Receive Date: 20150910
  Receipt Date: 20150910
  Transmission Date: 20151125
  Serious: No
  Sender: FDA-Public Use
  Company Number: US-ROCHE-1428003

PATIENT
  Sex: Male

DRUGS (4)
  1. SOVALDI [Suspect]
     Active Substance: SOFOSBUVIR
     Indication: CHRONIC HEPATITIS C
     Dosage: 12 WEEKS OF THERAPY
     Route: 048
     Dates: start: 20140614
  2. PEGASYS [Suspect]
     Active Substance: PEGINTERFERON ALFA-2A
     Indication: CHRONIC HEPATITIS C
     Dosage: 12 WEEKS OF THERAPY
     Route: 058
     Dates: start: 20140614
  3. COPEGUS [Suspect]
     Active Substance: RIBAVIRIN
     Indication: CHRONIC HEPATITIS C
     Dosage: TWO DIVIDED DOSES?12 WEEKS OF THERAPY
     Route: 048
     Dates: start: 20140614, end: 20140710
  4. COPEGUS [Suspect]
     Active Substance: RIBAVIRIN
     Dosage: TWO DIVIDED DOSES?12 WEEKS OF THERAPY
     Route: 048
     Dates: start: 20140710

REACTIONS (1)
  - Fatigue [Unknown]
